FAERS Safety Report 8702810 (Version 3)
Quarter: 2012Q4

REPORT INFORMATION
  Report Type: 
  Country: CA (occurrence: CA)
  Receive Date: 20120803
  Receipt Date: 20120904
  Transmission Date: 20130627
  Serious: Yes (Hospitalization, Other)
  Sender: FDA-Public Use
  Company Number: CA-AMGEN-CANSP2012042965

PATIENT
  Age: 55 Year
  Sex: Female

DRUGS (1)
  1. ENBREL [Suspect]
     Indication: RHEUMATOID ARTHRITIS
     Dosage: 50 mg, qwk
     Dates: start: 20110808, end: 20120709

REACTIONS (8)
  - Aspiration pleural cavity [Recovering/Resolving]
  - Cerebrovascular accident [Unknown]
  - Splenic infarction [Recovering/Resolving]
  - Rheumatoid lung [Unknown]
  - Septic shock [Recovering/Resolving]
  - Postoperative wound infection [Recovering/Resolving]
  - Staphylococcal infection [Recovering/Resolving]
  - Sepsis [Unknown]
